FAERS Safety Report 8579113-9 (Version None)
Quarter: 2012Q3

REPORT INFORMATION
  Report Type: 
  Country: None (occurrence: None)
  Receive Date: 20120808
  Receipt Date: 20120802
  Transmission Date: 20120928
  Serious: Yes (Hospitalization, Disabling, Other)
  Sender: FDA-Public Use
  Company Number: US-PFIZER INC-2012188867

PATIENT
  Age: 61 Year
  Sex: Female
  Weight: 79.365 kg

DRUGS (5)
  1. LYRICA [Suspect]
     Indication: PERONEAL NERVE PALSY
     Dosage: 600 MG, AS NEEDED
  2. GLYBURIDE [Concomitant]
     Indication: DIABETES MELLITUS
     Dosage: 10 MG, 2X/DAY
  3. LYRICA [Suspect]
     Dosage: 100 MG, 2X/DAY (TWO CAPSULES OF 50 MG )
     Route: 048
  4. LYRICA [Suspect]
     Indication: SCIATIC NERVE INJURY
     Dosage: 200 MG, DAILY
     Route: 048
  5. METFORMIN [Concomitant]
     Indication: DIABETES MELLITUS
     Dosage: 1000 MG, 2X/DAY

REACTIONS (7)
  - CARDIAC DISORDER [None]
  - INTERVERTEBRAL DISC PROTRUSION [None]
  - PERIPHERAL NERVE INJURY [None]
  - AMYOTROPHY [None]
  - FALL [None]
  - NERVE COMPRESSION [None]
  - MUSCULOSKELETAL DISORDER [None]
